FAERS Safety Report 21614672 (Version 1)
Quarter: 2022Q4

REPORT INFORMATION
  Report Type: Report from Study
  Country: JP (occurrence: JP)
  Receive Date: 20221118
  Receipt Date: 20221118
  Transmission Date: 20230113
  Serious: Yes (Other)
  Sender: FDA-Public Use
  Company Number: JP-SUN PHARMACEUTICAL INDUSTRIES LTD-2022R1-364556

PATIENT
  Age: 43 Year
  Sex: Male

DRUGS (3)
  1. CISPLATIN [Suspect]
     Active Substance: CISPLATIN
     Indication: Nasopharyngeal cancer
     Dosage: 70 MILLIGRAM/SQ. METER, DAY 1, EVERY 3 WEEKS
     Route: 065
  2. DOCETAXEL [Suspect]
     Active Substance: DOCETAXEL
     Indication: Nasopharyngeal cancer
     Dosage: 70 MILLIGRAM/SQ. METER, DAY 1, EVERY 3 WEEKS
     Route: 065
  3. FLUOROURACIL [Suspect]
     Active Substance: FLUOROURACIL
     Indication: Nasopharyngeal cancer
     Dosage: 750 MILLIGRAM/SQ. METER, DAYS 1-5, EVERY 3 WEEKS
     Route: 065

REACTIONS (1)
  - Therapy partial responder [Unknown]
